FAERS Safety Report 20306838 (Version 3)
Quarter: 2022Q1

REPORT INFORMATION
  Report Type: Spontaneous
  Country: BR (occurrence: BR)
  Receive Date: 20220106
  Receipt Date: 20220127
  Transmission Date: 20220423
  Serious: No
  Sender: FDA-Public Use
  Company Number: BR-UCBSA-2022000359

PATIENT
  Sex: Male
  Weight: 110 kg

DRUGS (2)
  1. NEUPRO [Suspect]
     Active Substance: ROTIGOTINE
     Indication: Parkinson^s disease
     Dosage: 4 MILLIGRAM, ONCE DAILY (QD)
     Route: 062
     Dates: start: 20211202
  2. NEUPRO [Suspect]
     Active Substance: ROTIGOTINE
     Dosage: 8MG UNK
     Route: 016
     Dates: start: 20211227

REACTIONS (4)
  - Drug ineffective [Unknown]
  - Product quality issue [Unknown]
  - Device adhesion issue [Unknown]
  - Incorrect route of product administration [Unknown]
